FAERS Safety Report 23771720 (Version 1)
Quarter: 2024Q2

REPORT INFORMATION
  Report Type: Spontaneous
  Country: US (occurrence: US)
  Receive Date: 20240423
  Receipt Date: 20240423
  Transmission Date: 20240716
  Serious: No
  Sender: FDA-Public Use
  Company Number: US-SCILEX PHARMACEUTICALS INC.-US-SOR-24-00001

PATIENT
  Age: 59 Year
  Sex: Male

DRUGS (3)
  1. ZTLIDO [Suspect]
     Active Substance: LIDOCAINE
     Indication: Back pain
     Dosage: ONE PATCH DAILY, QD
     Route: 061
     Dates: start: 20240101
  2. ACETAMINOPHEN [Concomitant]
     Active Substance: ACETAMINOPHEN
     Indication: Intervertebral disc protrusion
  3. CODEINE [Concomitant]
     Active Substance: CODEINE
     Indication: Intervertebral disc protrusion

REACTIONS (2)
  - Testicular pain [Unknown]
  - Off label use [Unknown]

NARRATIVE: CASE EVENT DATE: 20240102
